FAERS Safety Report 7189741-3 (Version None)
Quarter: 2010Q4

REPORT INFORMATION
  Report Type: 
  Country: None (occurrence: None)
  Receive Date: 20101223
  Receipt Date: 20101215
  Transmission Date: 20110411
  Serious: No
  Sender: FDA-Public Use
  Company Number: US-BIOGENIDEC-2010BI044159

PATIENT
  Age: 33 Year
  Sex: Male

DRUGS (2)
  1. TYSABRI [Suspect]
     Indication: MULTIPLE SCLEROSIS
     Route: 042
     Dates: start: 20081028, end: 20100701
  2. TYSABRI [Suspect]
     Route: 042
     Dates: start: 20101101

REACTIONS (3)
  - DIZZINESS [None]
  - FATIGUE [None]
  - NERVOUSNESS [None]
